FAERS Safety Report 8935863 (Version 1)
Quarter: 2012Q4

REPORT INFORMATION
  Report Type: 
  Country: US (occurrence: US)
  Receive Date: 20121130
  Receipt Date: 20121130
  Transmission Date: 20130627
  Serious: Yes (Other)
  Sender: FDA-Public Use
  Company Number: US-PFIZER INC-2012299764

PATIENT
  Age: 48 Year
  Sex: Male
  Weight: 63.49 kg

DRUGS (6)
  1. LIPITOR [Suspect]
     Indication: HIGH CHOLESTEROL
     Dosage: 20 mg, 1x/day
     Route: 048
     Dates: start: 1996
  2. DIAZEPAM [Concomitant]
     Dosage: 10 mg, 1x/day
  3. BENAZEPRIL [Concomitant]
     Dosage: 20 mg, UNK
  4. ATIVAN [Concomitant]
     Dosage: UNK
  5. BABY ASPIRIN [Concomitant]
     Dosage: UNK, 1x/day
  6. PLAVIX [Concomitant]
     Dosage: 75 mg, UNK

REACTIONS (5)
  - Myocardial infarction [Unknown]
  - Nephrolithiasis [Unknown]
  - Haemophilia [Unknown]
  - Weight decreased [Unknown]
  - Hearing impaired [Unknown]
